FAERS Safety Report 5235851-7 (Version None)
Quarter: 2007Q1

REPORT INFORMATION
  Report Type: 
  Country: None (occurrence: None)
  Receive Date: 20061208
  Receipt Date: 20051230
  Transmission Date: 20070707
  Serious: Yes (Other)
  Sender: FDA-Public Use
  Company Number: 2005UW18150

PATIENT
  Age: 31 Year
  Sex: Female
  Weight: 71.2147 kg

DRUGS (9)
  1. CRESTOR [Suspect]
     Indication: BLOOD CHOLESTEROL INCREASED
     Dosage: 5 MG DAILY PO
     Route: 048
     Dates: start: 20051004, end: 20051020
  2. MOBIC [Concomitant]
  3. ADALAT CC [Concomitant]
  4. SPIRONOLACTONE [Concomitant]
  5. ASPIRIN [Concomitant]
  6. ALLEGRA [Concomitant]
  7. CALCIUM W/VITAMIN D [Concomitant]
  8. ACEON [Concomitant]
  9. GLIPIZIDE [Concomitant]

REACTIONS (1)
  - MOUTH ULCERATION [None]
